FAERS Safety Report 11529814 (Version 2)
Quarter: 2015Q4

REPORT INFORMATION
  Report Type: Spontaneous
  Country: US (occurrence: US)
  Receive Date: 20150921
  Receipt Date: 20151012
  Transmission Date: 20160304
  Serious: Yes (Hospitalization, Other)
  Sender: FDA-Public Use
  Company Number: US-GLAXOSMITHKLINE INC.-US2015GSK134089

PATIENT
  Sex: Female

DRUGS (2)
  1. VERAMYST [Suspect]
     Active Substance: FLUTICASONE FUROATE
     Indication: SINUS OPERATION
     Dosage: UNK
     Dates: start: 2010
  2. VERAMYST [Suspect]
     Active Substance: FLUTICASONE FUROATE
     Indication: SINUS POLYP

REACTIONS (2)
  - Shoulder operation [Unknown]
  - Drug dose omission [Unknown]
